FAERS Safety Report 8923577 (Version 1)
Quarter: 2012Q4

REPORT INFORMATION
  Report Type: 
  Country: NL (occurrence: NL)
  Receive Date: 20121123
  Receipt Date: 20121123
  Transmission Date: 20130627
  Serious: Yes (Death, Other)
  Sender: FDA-Public Use
  Company Number: PHHY2012NL106682

PATIENT
  Age: 77 Year
  Sex: Female

DRUGS (2)
  1. ZOMETA [Suspect]
     Indication: BREAST CANCER METASTATIC
     Dosage: 4 mg/ 100 ml, once per 28 days
  2. ZOMETA [Suspect]
     Dosage: 4 mg/ 100 ml, once per 28 days
     Dates: start: 20121101

REACTIONS (2)
  - Death [Fatal]
  - General physical health deterioration [Unknown]
